FAERS Safety Report 9700579 (Version 1)
Quarter: 2013Q4

REPORT INFORMATION
  Report Type: Spontaneous
  Country: SI (occurrence: None)
  Receive Date: 20131119
  Receipt Date: 20131119
  Transmission Date: 20140711
  Serious: Yes (Life-Threatening, Hospitalization)
  Sender: FDA-Public Use
  Company Number: 2013P1020879

PATIENT
  Age: 52 Year
  Sex: Female

DRUGS (2)
  1. BUPROPION [Suspect]
     Indication: MAJOR DEPRESSION
  2. DULOXETINE [Suspect]
     Indication: MAJOR DEPRESSION
     Dates: start: 2012

REACTIONS (7)
  - Long QT syndrome [None]
  - Arrhythmia [None]
  - Palpitations [None]
  - Loss of consciousness [None]
  - Heart rate increased [None]
  - Toxicity to various agents [None]
  - Drug interaction [None]
